FAERS Safety Report 24163937 (Version 2)
Quarter: 2024Q3

REPORT INFORMATION
  Report Type: Spontaneous
  Country: JP (occurrence: JP)
  Receive Date: 20240801
  Receipt Date: 20240823
  Transmission Date: 20241016
  Serious: Yes (Death, Hospitalization)
  Sender: DAIICHI
  Company Number: JP-DSJP-DSJ-2024-138132

PATIENT
  Age: 68 Year
  Sex: Male

DRUGS (1)
  1. ENHERTU [Suspect]
     Active Substance: FAM-TRASTUZUMAB DERUXTECAN-NXKI
     Indication: HER2 positive gastric cancer
     Dosage: 5.4 MG/KG, ONCE EVERY 3 WK
     Route: 041
     Dates: start: 20231010, end: 20231010

REACTIONS (6)
  - Tumour necrosis [Fatal]
  - Vena cava thrombosis [Fatal]
  - Disease progression [Fatal]
  - Ileus [Unknown]
  - Pneumonia aspiration [Unknown]
  - Underdose [Unknown]

NARRATIVE: CASE EVENT DATE: 20230101
